FAERS Safety Report 9841756 (Version 1)
Quarter: 2014Q1

REPORT INFORMATION
  Report Type: Spontaneous
  Country: US (occurrence: US)
  Receive Date: 20140124
  Receipt Date: 20140124
  Transmission Date: 20141002
  Serious: Yes (Hospitalization)
  Sender: FDA-Public Use
  Company Number: US-ASTRAZENECA-2014SE03614

PATIENT
  Age: 684 Month
  Sex: Female
  Weight: 89.8 kg

DRUGS (5)
  1. LISINOPRIL [Suspect]
     Indication: HYPERTENSION
     Route: 048
  2. TOPROL [Suspect]
     Indication: HYPERTENSION
     Dosage: TWO TIMES A DAY
     Route: 048
  3. SEROQUEL [Suspect]
     Dosage: TOTAL DOSE:100MG, BY TAKING  25MG IN THE MORNING,25 MG IN THE AFTERNOON AT 3PM AND TWO 25MG AT NIGHT
     Route: 048
  4. LYRICA [Suspect]
     Indication: FIBROMYALGIA
     Route: 048
     Dates: start: 2009
  5. ZOLOFT [Concomitant]

REACTIONS (13)
  - Gastroenteritis viral [Unknown]
  - Malaise [Unknown]
  - Dehydration [Unknown]
  - Aphagia [Unknown]
  - Respiratory disorder [Unknown]
  - Cardiac disorder [Unknown]
  - Drug intolerance [Unknown]
  - Oxygen saturation decreased [Unknown]
  - Unresponsive to stimuli [Unknown]
  - Electrocardiogram abnormal [Unknown]
  - Endocarditis bacterial [Unknown]
  - Myocardial infarction [Unknown]
  - Vomiting [Unknown]
